FAERS Safety Report 8578996 (Version 7)
Quarter: 2016Q2

REPORT INFORMATION
  Report Type: Spontaneous
  Country: BR (occurrence: BR)
  Receive Date: 20120524
  Receipt Date: 20160606
  Transmission Date: 20160815
  Serious: Yes (Other)
  Sender: FDA-Public Use
  Company Number: BR-PFIZER INC-2010095899

PATIENT
  Age: 61 Year
  Sex: Female
  Weight: 86 kg

DRUGS (23)
  1. CAPTOPRIL. [Concomitant]
     Active Substance: CAPTOPRIL
     Indication: HYPERTENSION
     Dosage: UNK
  2. FUROSEMIDE. [Concomitant]
     Active Substance: FUROSEMIDE
     Indication: DIURETIC THERAPY
     Dosage: 40 MG, DAILY
     Dates: start: 2014
  3. FRONTAL XR [Suspect]
     Active Substance: ALPRAZOLAM
     Indication: ANXIETY
     Dosage: 0.5 MG, 1X/DAY (AT NIGHT)
     Route: 048
     Dates: start: 20100430
  4. AMLODIPINE [Concomitant]
     Active Substance: AMLODIPINE BESYLATE
     Indication: HYPERTENSION
     Dosage: 1 TABLET EVERY 12 HOURS
     Route: 048
  5. AAS [Concomitant]
     Active Substance: ASPIRIN
     Indication: ANTICOAGULANT THERAPY
     Dosage: 1 TABLET, DAILY
     Route: 048
     Dates: start: 1980
  6. FRONTAL [Suspect]
     Active Substance: ALPRAZOLAM
     Dosage: 2 MG, 2X/DAY
     Route: 048
     Dates: start: 20100430
  7. FRONTAL [Suspect]
     Active Substance: ALPRAZOLAM
     Dosage: 1 MG, 3X/DAY
     Route: 048
     Dates: start: 20120515
  8. FRONTAL XR [Suspect]
     Active Substance: ALPRAZOLAM
     Indication: DEPRESSION
     Dosage: 0.5 MG 1 TABLET IN THE MORNING AND 1 TABLET AT NIGHT
     Route: 048
     Dates: start: 2012, end: 2012
  9. ATENOLOL. [Concomitant]
     Active Substance: ATENOLOL
     Indication: HYPERTENSION
     Dosage: 1 TABLET (50MG) EVERY 12 HOURS
     Route: 048
     Dates: start: 2011
  10. MODURETIC 5-50 [Concomitant]
     Active Substance: AMILORIDE HYDROCHLORIDE\HYDROCHLOROTHIAZIDE
     Indication: HYPERTENSION
     Dosage: UNK
  11. LOSARTAN. [Concomitant]
     Active Substance: LOSARTAN
     Indication: DIABETES MELLITUS
     Dosage: 50 MG, DAILY
     Route: 048
  12. AMLODIPINE [Concomitant]
     Active Substance: AMLODIPINE BESYLATE
     Indication: HYPERTENSION
     Dosage: 1 TABLET (5 MG), EVERY 12 HOURS
     Dates: start: 2011
  13. FRONTAL [Suspect]
     Active Substance: ALPRAZOLAM
     Dosage: 1.5 MG (3 TABLETS OF 0.5MG), DAILY
     Route: 048
     Dates: start: 2000
  14. INSULIN /00646001/ [Concomitant]
     Active Substance: INSULIN NOS
     Indication: DIABETES MELLITUS
     Dosage: 10 MG, 1X/DAY
  15. LOSARTAN. [Concomitant]
     Active Substance: LOSARTAN
     Indication: HYPERTENSION
     Dosage: 2 TABLETS OF 50MG (100MG) DAILY (1 TABLET EVERY 12 HOURS)
     Route: 048
     Dates: start: 2011
  16. ATENSINA [Concomitant]
     Active Substance: CLONIDINE
     Indication: HYPERTENSION
     Dosage: 1 TABLET (0.1 MG), EVERY 8 HOURS
     Route: 048
     Dates: start: 2011
  17. AZUKON MR [Concomitant]
     Indication: DIABETES MELLITUS
     Dosage: 2 TABLETS OF 30MG (60 MG) BEFORE BREAKFAST
     Dates: start: 2011
  18. ROSUVASTATIN. [Concomitant]
     Active Substance: ROSUVASTATIN
     Indication: HEPATIC STEATOSIS
     Dosage: 1 TABLET, DAILY
     Route: 048
  19. GLIFAGE XR [Concomitant]
     Active Substance: METFORMIN HYDROCHLORIDE
     Indication: DIABETES MELLITUS
     Dosage: 2 TABLETS DAILY
     Route: 048
     Dates: start: 1980
  20. GLIFAGE XR [Concomitant]
     Active Substance: METFORMIN HYDROCHLORIDE
     Dosage: 4 TABLETS OF 500MG (2000MG) DAILY
     Route: 048
     Dates: start: 2011
  21. VITAMIN B1 [Concomitant]
     Active Substance: THIAMINE HYDROCHLORIDE
     Indication: DIABETES MELLITUS
     Dosage: 1 TABLET EVERY 12 HOURS
     Route: 048
     Dates: start: 201412
  22. FLUX XR [Concomitant]
     Indication: BLOOD PRESSURE ABNORMAL
     Dosage: 1 TABLET IN THE MORNING
  23. FRONTAL [Suspect]
     Active Substance: ALPRAZOLAM
     Indication: DEPRESSION
     Dosage: 0.5 MG, 2X/DAY
     Route: 048
     Dates: start: 2000, end: 2000

REACTIONS (12)
  - Diarrhoea [Unknown]
  - Feeling abnormal [Unknown]
  - Seizure [Unknown]
  - Anxiety [Unknown]
  - Vomiting [Unknown]
  - Drug ineffective [Unknown]
  - Drug dependence [Unknown]
  - Blood pressure increased [Not Recovered/Not Resolved]
  - Condition aggravated [Unknown]
  - Intentional product use issue [Unknown]
  - Insomnia [Unknown]
  - Depression [Unknown]

NARRATIVE: CASE EVENT DATE: 20120518
